FAERS Safety Report 23958675 (Version 1)
Quarter: 2024Q2

REPORT INFORMATION
  Report Type: Spontaneous
  Country: NO (occurrence: NO)
  Receive Date: 20240610
  Receipt Date: 20240610
  Transmission Date: 20240715
  Serious: Yes (Hospitalization)
  Sender: FDA-Public Use
  Company Number: None

PATIENT
  Age: 62 Year
  Sex: Female

DRUGS (1)
  1. WEGOVY [Suspect]
     Active Substance: SEMAGLUTIDE
     Indication: Obesity
     Dosage: 1 DF, QW
     Route: 058
     Dates: start: 20231018, end: 20240124

REACTIONS (4)
  - Atrial tachycardia [Recovering/Resolving]
  - Cardiac failure [Recovering/Resolving]
  - Cardioversion [Recovering/Resolving]
  - Conduction disorder [Recovering/Resolving]
